FAERS Safety Report 24879456 (Version 5)
Quarter: 2025Q4

REPORT INFORMATION
  Report Type: Spontaneous
  Country: US (occurrence: US)
  Receive Date: 20250123
  Receipt Date: 20251209
  Transmission Date: 20260117
  Serious: No
  Sender: SANOFI AVENTIS
  Company Number: US-SA-2025SA020288

PATIENT
  Age: 20 Year
  Sex: Male

DRUGS (2)
  1. ELOCTATE [Suspect]
     Active Substance: EFMOROCTOCOG ALFA
     Indication: Prophylaxis
     Dosage: 3625 UNITS (+/- 10%) TWICE A WEEK
     Route: 042
  2. ELOCTATE [Suspect]
     Active Substance: EFMOROCTOCOG ALFA
     Indication: Prophylaxis
     Dosage: 3625 UNITS (+/- 10%) TWICE A WEEK
     Route: 042

REACTIONS (5)
  - Road traffic accident [Unknown]
  - Head injury [Unknown]
  - Traumatic haemorrhage [Unknown]
  - Haemorrhage [Recovered/Resolved]
  - Ligament sprain [Recovered/Resolved]

NARRATIVE: CASE EVENT DATE: 20250105
